FAERS Safety Report 9518574 (Version 1)
Quarter: 2013Q3

REPORT INFORMATION
  Report Type: Spontaneous
  Country: US (occurrence: None)
  Receive Date: 20130910
  Receipt Date: 20130910
  Transmission Date: 20140515
  Serious: Yes (Hospitalization)
  Sender: FDA-Public Use
  Company Number: FK201304163

PATIENT
  Age: 7 Year
  Sex: Male

DRUGS (5)
  1. IRINOTECAN [Suspect]
     Indication: ALVEOLAR RHABDOMYOSARCOMA
  2. TOPOTECAN [Suspect]
     Indication: ALVEOLAR RHABDOMYOSARCOMA
  3. CYCLOPHOSPHAMIDE (MANUFACTURER UNKNOWN) (CYCLOPHOSPHAMIDE) (CYCLOPHOSPHAMIDE) [Suspect]
     Indication: ALVEOLAR RHABDOMYOSARCOMA
  4. TEMOZOLOMIDE [Suspect]
     Indication: ALVEOLAR RHABDOMYOSARCOMA
  5. VINCRISTINE [Suspect]
     Indication: ALVEOLAR RHABDOMYOSARCOMA

REACTIONS (5)
  - Pyrexia [None]
  - Chills [None]
  - Spinal cord compression [None]
  - Alveolar rhabdomyosarcoma [None]
  - Disease recurrence [None]
